FAERS Safety Report 24005529 (Version 1)
Quarter: 2024Q2

REPORT INFORMATION
  Report Type: Spontaneous
  Country: RU (occurrence: RU)
  Receive Date: 20240624
  Receipt Date: 20240624
  Transmission Date: 20240716
  Serious: Yes (Other)
  Sender: FDA-Public Use
  Company Number: RU-009507513-2406RUS006659

PATIENT
  Age: 70 Year
  Sex: Male

DRUGS (4)
  1. PEMBROLIZUMAB [Suspect]
     Active Substance: PEMBROLIZUMAB
     Indication: Lung squamous cell carcinoma metastatic
     Dosage: 200 MILLIGRAM, Q3W
     Route: 042
     Dates: start: 20220526, end: 2022
  2. PEMBROLIZUMAB [Suspect]
     Active Substance: PEMBROLIZUMAB
     Dosage: 200 MILLIGRAM, Q3W
     Route: 042
     Dates: start: 20220810, end: 202210
  3. ALECTINIB [Suspect]
     Active Substance: ALECTINIB
     Indication: Lung squamous cell carcinoma metastatic
     Dosage: UNK
     Dates: start: 202211, end: 20230206
  4. ALECTINIB [Suspect]
     Active Substance: ALECTINIB
     Dosage: UNK
     Dates: start: 20230324

REACTIONS (4)
  - Rheumatoid arthritis [Unknown]
  - Malignant neoplasm progression [Unknown]
  - Pneumonitis [Unknown]
  - Cholelithiasis [Unknown]

NARRATIVE: CASE EVENT DATE: 20221001
